FAERS Safety Report 6947977-8 (Version None)
Quarter: 2010Q3

REPORT INFORMATION
  Report Type: 
  Country: None (occurrence: None)
  Receive Date: 20100825
  Receipt Date: 20100816
  Transmission Date: 20110219
  Serious: Yes (Death)
  Sender: FDA-Public Use
  Company Number: 2010GW000657

PATIENT
  Age: 60 Year
  Sex: Male

DRUGS (1)
  1. ALDARA [Suspect]
     Indication: PRECANCEROUS SKIN LESION
     Dosage: 5 PCT; TOP
     Route: 061
     Dates: start: 20090501

REACTIONS (15)
  - APPLICATION SITE DISCHARGE [None]
  - APPLICATION SITE DISCOLOURATION [None]
  - APPLICATION SITE SCAB [None]
  - ARRHYTHMIA [None]
  - DIZZINESS [None]
  - DYSPHEMIA [None]
  - DYSPNOEA [None]
  - FALL [None]
  - FATIGUE [None]
  - LIP SWELLING [None]
  - MYALGIA [None]
  - PAIN IN EXTREMITY [None]
  - SKIN DISCOLOURATION [None]
  - SWOLLEN TONGUE [None]
  - WEIGHT DECREASED [None]
